FAERS Safety Report 8472332-1 (Version None)
Quarter: 2012Q2

REPORT INFORMATION
  Report Type: 
  Country: None (occurrence: None)
  Receive Date: 20120627
  Receipt Date: 20120618
  Transmission Date: 20120825
  Serious: Yes (Hospitalization)
  Sender: FDA-Public Use
  Company Number: US-ACTELION-A-NJ2012-65269

PATIENT

DRUGS (3)
  1. TYVASO [Concomitant]
  2. COUMADIN [Concomitant]
  3. TRACLEER [Suspect]
     Indication: PULMONARY ARTERIAL HYPERTENSION
     Dosage: UNK
     Route: 048
     Dates: start: 20021009

REACTIONS (4)
  - TONGUE NEOPLASM [None]
  - POST PROCEDURAL INFECTION [None]
  - TUMOUR EXCISION [None]
  - SKIN GRAFT [None]
